FAERS Safety Report 10678154 (Version 1)
Quarter: 2014Q4

REPORT INFORMATION
  Report Type: Spontaneous
  Country: US (occurrence: None)
  Receive Date: 20141223
  Receipt Date: 20141223
  Transmission Date: 20150529
  Serious: Yes (Other)
  Sender: FDA-Public Use
  Company Number: INT_00548_2014

PATIENT
  Age: 62 Year
  Sex: Female

DRUGS (4)
  1. IRINOTECAN [Suspect]
     Active Substance: IRINOTECAN
     Indication: SMALL CELL LUNG CANCER
     Dosage: AT 20% REDUCED DOSE
  2. CISPLATIN. [Suspect]
     Active Substance: CISPLATIN
     Indication: SMALL CELL LUNG CANCER
     Dosage: [ON DAY 1])
  3. ETOPOSIDE. [Suspect]
     Active Substance: ETOPOSIDE
     Indication: SMALL CELL LUNG CANCER
     Dosage: ON DAYS 1 THROUGH 3
  4. CHEMORADIATION THERAPY [Concomitant]

REACTIONS (9)
  - Decreased appetite [None]
  - Leukopenia [None]
  - Dermatitis psoriasiform [None]
  - Trichophytic granuloma [None]
  - Weight decreased [None]
  - Neutropenia [None]
  - Dermatophytosis [None]
  - Type IV hypersensitivity reaction [None]
  - Dysphagia [None]
